FAERS Safety Report 15787615 (Version 1)
Quarter: 2019Q1

REPORT INFORMATION
  Report Type: Spontaneous
  Country: US (occurrence: US)
  Receive Date: 20190103
  Receipt Date: 20190103
  Transmission Date: 20190417
  Serious: Yes (Hospitalization, Other)
  Sender: FDA-Public Use
  Company Number: US-GILEAD-2018-0371561

PATIENT
  Age: 69 Year
  Sex: Male
  Weight: 85.14 kg

DRUGS (19)
  1. AMIODARONE [Suspect]
     Active Substance: AMIODARONE
     Indication: ATRIAL FIBRILLATION
     Dosage: 200 MG
     Route: 048
     Dates: start: 20181012
  2. PANTOPRAZOLE [Concomitant]
     Active Substance: PANTOPRAZOLE
  3. SENNA SPP. [Concomitant]
     Indication: CONSTIPATION
  4. ASPIRIN [ACETYLSALICYLIC ACID] [Concomitant]
     Active Substance: ASPIRIN
  5. ATORVASTATIN [Concomitant]
     Active Substance: ATORVASTATIN
  6. DOCUSATE [Concomitant]
     Active Substance: DOCUSATE
     Indication: CONSTIPATION
  7. POLYETHYLENE GLYCOL 3350. [Concomitant]
     Active Substance: POLYETHYLENE GLYCOL 3350
     Indication: CONSTIPATION
  8. CARVEDILOL. [Concomitant]
     Active Substance: CARVEDILOL
  9. FUROSEMIDE. [Concomitant]
     Active Substance: FUROSEMIDE
  10. ALBUMIN [Concomitant]
     Active Substance: ALBUMIN HUMAN
  11. IPRATROPIUM [Concomitant]
     Active Substance: IPRATROPIUM
     Indication: ASTHMA
  12. MIDODRINE [Concomitant]
     Active Substance: MIDODRINE
  13. EPCLUSA [Suspect]
     Active Substance: SOFOSBUVIR\VELPATASVIR
     Indication: HEPATITIS C
     Dosage: 1 DF
     Route: 048
     Dates: start: 20181010, end: 20181016
  14. CHOLECALCIFEROL [Concomitant]
     Active Substance: CHOLECALCIFEROL
  15. INSULIN ASPART [Concomitant]
     Active Substance: INSULIN ASPART
     Indication: TYPE 2 DIABETES MELLITUS
  16. ACETAMINOPHEN. [Concomitant]
     Active Substance: ACETAMINOPHEN
  17. LIDOCAINE. [Concomitant]
     Active Substance: LIDOCAINE
  18. SEVELAMER CARBONATE. [Concomitant]
     Active Substance: SEVELAMER CARBONATE
  19. VALSARTAN. [Concomitant]
     Active Substance: VALSARTAN

REACTIONS (5)
  - Pulseless electrical activity [Recovered/Resolved]
  - Atrial fibrillation [Unknown]
  - Bradycardia [Unknown]
  - Coronary artery bypass [Unknown]
  - Vomiting [Unknown]

NARRATIVE: CASE EVENT DATE: 20181011
